FAERS Safety Report 7302160-1 (Version None)
Quarter: 2011Q1

REPORT INFORMATION
  Report Type: 
  Country: None (occurrence: None)
  Receive Date: 20110218
  Receipt Date: 20110207
  Transmission Date: 20110831
  Serious: Yes (Hospitalization)
  Sender: FDA-Public Use
  Company Number: PHHO2011US02570

PATIENT
  Sex: Female
  Weight: 52 kg

DRUGS (3)
  1. CGS 20267 [Suspect]
     Indication: ENDOMETRIAL CANCER
     Dosage: 2.5 MG / DAY
     Route: 048
     Dates: start: 20110111
  2. HEPARIN [Concomitant]
  3. AFINITOR [Suspect]
     Indication: ENDOMETRIAL CANCER
     Dosage: 10 MG / DAY
     Route: 048
     Dates: start: 20110111

REACTIONS (11)
  - DIZZINESS [None]
  - TACHYCARDIA [None]
  - DYSPNOEA [None]
  - ABDOMINAL DISCOMFORT [None]
  - HEADACHE [None]
  - FATIGUE [None]
  - CONJUNCTIVAL PALLOR [None]
  - GASTROINTESTINAL HAEMORRHAGE [None]
  - PALLOR [None]
  - ANAEMIA [None]
  - HAEMOGLOBIN DECREASED [None]
